FAERS Safety Report 4538422-0 (Version None)
Quarter: 2004Q4

REPORT INFORMATION
  Report Type: 
  Country: None (occurrence: None)
  Receive Date: 20041223
  Receipt Date: 20041223
  Transmission Date: 20050328
  Serious: No
  Sender: FDA-Public Use
  Company Number: None

PATIENT
  Age: 52 Year
  Sex: Male
  Weight: 149.687 kg

DRUGS (11)
  1. REMICADE [Suspect]
     Indication: RHEUMATOID ARTHRITIS
     Dosage: 430 MG
     Dates: start: 20040210
  2. BEXTRA [Concomitant]
  3. ZANTAC [Concomitant]
  4. ROBAXIN [Concomitant]
  5. DETROL LA [Concomitant]
  6. PRAVACHOL [Concomitant]
  7. EKAVIL [Concomitant]
  8. ASPIRIN [Concomitant]
  9. IBUPROFEN [Concomitant]
  10. PHENOBARBITAL TAB [Concomitant]
  11. OXYCODONE HCL [Concomitant]

REACTIONS (3)
  - CHILLS [None]
  - INFUSION RELATED REACTION [None]
  - PYREXIA [None]
